FAERS Safety Report 14816049 (Version 1)
Quarter: 2018Q2

REPORT INFORMATION
  Report Type: Spontaneous
  Country: FR (occurrence: FR)
  Receive Date: 20180426
  Receipt Date: 20180426
  Transmission Date: 20180711
  Serious: Yes (Other)
  Sender: FDA-Public Use
  Company Number: FR-PFIZER INC-2018163027

PATIENT
  Age: 65 Year
  Sex: Male
  Weight: 73 kg

DRUGS (4)
  1. PROPOFOL. [Suspect]
     Active Substance: PROPOFOL
     Indication: INDUCTION OF ANAESTHESIA
     Dosage: 150 MG, UNK
     Route: 042
     Dates: start: 20180305, end: 20180305
  2. SUXAMETHONIUM /00057702/ [Suspect]
     Active Substance: SUCCINYLCHOLINE
     Indication: INDUCTION OF ANAESTHESIA
     Dosage: 70 MG, UNK
     Route: 042
     Dates: start: 20180305, end: 20180305
  3. ATRACURIUM BESILATE [Suspect]
     Active Substance: ATRACURIUM BESYLATE
     Indication: INDUCTION OF ANAESTHESIA
     Dosage: 35 MG, UNK
     Route: 042
     Dates: start: 20180305, end: 20180305
  4. KETAMINE [Suspect]
     Active Substance: KETAMINE
     Indication: INDUCTION OF ANAESTHESIA
     Dosage: 25 MG, UNK
     Route: 042
     Dates: start: 20180305, end: 20180305

REACTIONS (1)
  - Anaphylactic shock [Recovered/Resolved]

NARRATIVE: CASE EVENT DATE: 20180305
